FAERS Safety Report 23484361 (Version 3)
Quarter: 2024Q1

REPORT INFORMATION
  Report Type: Report from Study
  Country: US (occurrence: US)
  Receive Date: 20240206
  Receipt Date: 20240305
  Transmission Date: 20240409
  Serious: Yes (Other)
  Sender: FDA-Public Use
  Company Number: US-ABBVIE-5619436

PATIENT
  Age: 23 Year
  Sex: Male
  Weight: 143 kg

DRUGS (1)
  1. HUMIRA [Suspect]
     Active Substance: ADALIMUMAB
     Indication: Psoriatic arthropathy
     Dosage: CITRATE FREE, FORM STRENGTH: 40 MILLIGRAM
     Route: 058
     Dates: start: 202212

REACTIONS (5)
  - Fluid retention [Not Recovered/Not Resolved]
  - Fluid retention [Recovered/Resolved]
  - Pain in extremity [Not Recovered/Not Resolved]
  - Joint adhesion [Not Recovered/Not Resolved]
  - Joint range of motion decreased [Recovered/Resolved]

NARRATIVE: CASE EVENT DATE: 20230201
